FAERS Safety Report 6049484-6 (Version None)
Quarter: 2009Q1

REPORT INFORMATION
  Report Type: 
  Country: None (occurrence: None)
  Receive Date: 20090123
  Receipt Date: 20090116
  Transmission Date: 20090719
  Serious: Yes (Other)
  Sender: FDA-Public Use
  Company Number: US-GILEAD-2008-0016956

PATIENT
  Sex: Female
  Weight: 71.7 kg

DRUGS (3)
  1. LETAIRIS [Suspect]
     Indication: PULMONARY ARTERIAL HYPERTENSION
     Route: 048
     Dates: start: 20080120, end: 20080201
  2. ORTHO-NOVUM 1/35 [Concomitant]
     Route: 048
     Dates: start: 20080111, end: 20080111
  3. ORTHO-NOVUM 1/35 [Concomitant]
     Route: 048
     Dates: start: 20080201, end: 20080201

REACTIONS (1)
  - PREGNANCY [None]
